FAERS Safety Report 8797043 (Version 2)
Quarter: 2012Q4

REPORT INFORMATION
  Report Type: Report from Study
  Country: US (occurrence: US)
  Receive Date: 20120920
  Receipt Date: 20120927
  Transmission Date: 20130627
  Serious: Yes (Hospitalization)
  Sender: FDA-Public Use
  Company Number: US-ASTELLAS-2012US007947

PATIENT
  Age: 53 Year
  Sex: Female
  Weight: 65 kg

DRUGS (9)
  1. ERLOTINIB TABLET [Suspect]
     Indication: NON-SMALL CELL LUNG CANCER
     Dosage: 150 mg, Unknown/D
     Route: 048
     Dates: start: 20120620, end: 20120912
  2. ERLOTINIB TABLET [Suspect]
     Dosage: UNK
     Route: 048
     Dates: start: 20120915
  3. HYDROXYCHLOROQUINE SULFATE [Suspect]
     Indication: NON-SMALL CELL LUNG CANCER
     Dosage: 100 mg, Unknown/D
     Route: 048
     Dates: start: 20120620, end: 20120912
  4. HYDROXYCHLOROQUINE SULFATE [Suspect]
     Dosage: UNK
     Route: 048
     Dates: start: 20120915
  5. ATIVAN [Concomitant]
     Indication: PRODUCT USED FOR UNKNOWN INDICATION
     Dosage: 5 mg, Unknown/D
     Route: 065
  6. CLEOCIN T [Concomitant]
     Indication: PRODUCT USED FOR UNKNOWN INDICATION
     Dosage: UNK
     Route: 061
  7. COMPAZINE                          /00013302/ [Concomitant]
     Indication: PRODUCT USED FOR UNKNOWN INDICATION
     Dosage: 10 mg, Unknown/D
     Route: 065
  8. IMODIUM A-D [Concomitant]
     Indication: PRODUCT USED FOR UNKNOWN INDICATION
     Dosage: UNK
     Route: 065
  9. OXYCODONE [Concomitant]
     Indication: PRODUCT USED FOR UNKNOWN INDICATION
     Dosage: 5 mg, Unknown/D
     Route: 065

REACTIONS (1)
  - Herpes zoster [Recovering/Resolving]
